FAERS Safety Report 14827957 (Version 6)
Quarter: 2020Q4

REPORT INFORMATION
  Report Type: Spontaneous
  Country: US (occurrence: US)
  Receive Date: 20180430
  Receipt Date: 20201103
  Transmission Date: 20210113
  Serious: Yes (Hospitalization, Other)
  Sender: FDA-Public Use
  Company Number: US-GLAXOSMITHKLINE-US2018GSK069206

PATIENT
  Age: 65 Year
  Sex: Female

DRUGS (6)
  1. LANSOPRAZOLE ACTAVIS [Suspect]
     Active Substance: LANSOPRAZOLE
     Indication: PRODUCT USED FOR UNKNOWN INDICATION
     Dosage: 15 MG, BID
     Route: 048
  2. LANSOPRAZOLE ACTAVIS [Suspect]
     Active Substance: LANSOPRAZOLE
     Dosage: 30 MG, QD
     Route: 048
  3. PREVACID [Suspect]
     Active Substance: LANSOPRAZOLE
     Indication: PRODUCT USED FOR UNKNOWN INDICATION
     Dosage: 30 MG, QD
     Route: 048
  4. PREVACID 24 HR [Suspect]
     Active Substance: LANSOPRAZOLE
     Indication: PRODUCT USED FOR UNKNOWN INDICATION
     Route: 048
  5. PANTOPRAZOLE                       /01263204/ [Suspect]
     Active Substance: PANTOPRAZOLE SODIUM
     Indication: PRODUCT USED FOR UNKNOWN INDICATION
     Dosage: 40 MG, QD
     Route: 048
  6. PREVACID [Suspect]
     Active Substance: LANSOPRAZOLE
     Indication: PRODUCT USED FOR UNKNOWN INDICATION
     Dosage: 15 MG
     Route: 065

REACTIONS (19)
  - Renal artery stenosis [Unknown]
  - Acute kidney injury [Unknown]
  - Renal ischaemia [Unknown]
  - Renal cyst [Unknown]
  - Nephrogenic anaemia [Unknown]
  - Chronic kidney disease [Unknown]
  - Hyperchlorhydria [Unknown]
  - Dialysis [Unknown]
  - Renal atrophy [Unknown]
  - Diabetic nephropathy [Unknown]
  - Pollakiuria [Unknown]
  - Renal failure [Unknown]
  - Dysuria [Unknown]
  - Micturition urgency [Unknown]
  - Nephropathy [Unknown]
  - Renal tubular necrosis [Unknown]
  - Renal impairment [Unknown]
  - Blood creatinine increased [Unknown]
  - Azotaemia [Unknown]

NARRATIVE: CASE EVENT DATE: 20141106
